FAERS Safety Report 20617519 (Version 1)
Quarter: 2022Q1

REPORT INFORMATION
  Report Type: Spontaneous
  Country: US (occurrence: US)
  Receive Date: 20220321
  Receipt Date: 20220321
  Transmission Date: 20220424
  Serious: Yes (Other)
  Sender: FDA-Public Use
  Company Number: US-OTSUKA-2022_012147

PATIENT
  Age: 52 Year
  Sex: Female

DRUGS (1)
  1. ABILIFY [Suspect]
     Active Substance: ARIPIPRAZOLE
     Indication: Major depression
     Dosage: 60 MG, QD (IN THE MORNING)
     Route: 065

REACTIONS (4)
  - Brain stem stroke [Unknown]
  - Swelling face [Unknown]
  - Face oedema [Unknown]
  - Job dissatisfaction [Unknown]
